FAERS Safety Report 8345244-1 (Version None)
Quarter: 2012Q2

REPORT INFORMATION
  Report Type: 
  Country: None (occurrence: None)
  Receive Date: 20120508
  Receipt Date: 20120425
  Transmission Date: 20120825
  Serious: Yes (Hospitalization)
  Sender: FDA-Public Use
  Company Number: RU-CELGENEUS-251-21880-12032092

PATIENT
  Sex: Male
  Weight: 81 kg

DRUGS (7)
  1. DEXAMETHASONE [Suspect]
     Indication: MULTIPLE MYELOMA
     Route: 065
     Dates: start: 20111122, end: 20120221
  2. DIABETON [Concomitant]
     Indication: TYPE 2 DIABETES MELLITUS
     Dosage: 30 MILLIGRAM
     Route: 048
     Dates: start: 20111102
  3. REVLIMID [Suspect]
     Indication: MULTIPLE MYELOMA
     Dosage: 25 MILLIGRAM
     Route: 048
     Dates: start: 20111122, end: 20120223
  4. ACTRAPID [Concomitant]
     Dosage: 6 IU (INTERNATIONAL UNIT)
     Route: 041
     Dates: start: 20120327, end: 20120327
  5. DEXAMETHASONE [Suspect]
     Dosage: 12 MILLIGRAM
     Route: 041
     Dates: start: 20120224, end: 20120307
  6. ASPIRIN [Concomitant]
     Indication: GOUTY ARTHRITIS
     Dosage: 100 MILLIGRAM
     Route: 048
     Dates: start: 20120210, end: 20120220
  7. LANSOPRAZOLE [Concomitant]
     Indication: PROPHYLAXIS
     Dosage: 30 MILLIGRAM
     Route: 048
     Dates: start: 20111122

REACTIONS (2)
  - RESPIRATORY TRACT INFECTION VIRAL [None]
  - VASCULITIS [None]
